FAERS Safety Report 17918898 (Version 1)
Quarter: 2020Q2

REPORT INFORMATION
  Report Type: Spontaneous
  Country: US (occurrence: US)
  Receive Date: 20200619
  Receipt Date: 20200619
  Transmission Date: 20200714
  Serious: No
  Sender: FDA-Public Use
  Company Number: US-PFIZER INC-2020236875

PATIENT
  Age: 54 Year
  Sex: Male
  Weight: 81.65 kg

DRUGS (1)
  1. SILDENAFIL CITRATE. [Suspect]
     Active Substance: SILDENAFIL CITRATE
     Indication: NEOPLASM MALIGNANT
     Dosage: 100 MG, AS NEEDED (ONE TABLET AS NEEDED.)
     Dates: start: 201912

REACTIONS (3)
  - Headache [Not Recovered/Not Resolved]
  - Off label use [Unknown]
  - Product use in unapproved indication [Unknown]

NARRATIVE: CASE EVENT DATE: 201912
